FAERS Safety Report 7282385-4 (Version None)
Quarter: 2011Q1

REPORT INFORMATION
  Report Type: 
  Country: None (occurrence: None)
  Receive Date: 20110125
  Receipt Date: 20110110
  Transmission Date: 20110831
  Serious: Yes (Death)
  Sender: FDA-Public Use
  Company Number: 025432

PATIENT
  Age: 20 Year
  Sex: Female

DRUGS (2)
  1. ALPRAZOLAM [Suspect]
  2. CARBON MONOXIDE [Suspect]

REACTIONS (17)
  - NASAL DISORDER [None]
  - MEDICATION ERROR [None]
  - RHONCHI [None]
  - ELECTROENCEPHALOGRAM ABNORMAL [None]
  - CARBOXYHAEMOGLOBIN INCREASED [None]
  - BLOOD PH DECREASED [None]
  - PCO2 INCREASED [None]
  - ORAL DISORDER [None]
  - TONGUE DISORDER [None]
  - BREATH SOUNDS ABNORMAL [None]
  - HEART RATE INCREASED [None]
  - VENTRICULAR EXTRASYSTOLES [None]
  - OXYGEN SATURATION DECREASED [None]
  - INCREASED VISCOSITY OF BRONCHIAL SECRETION [None]
  - RESPIRATORY RATE INCREASED [None]
  - TROPONIN INCREASED [None]
  - BRAIN SCAN ABNORMAL [None]
